FAERS Safety Report 6607023-2 (Version None)
Quarter: 2010Q1

REPORT INFORMATION
  Report Type: 
  Country: None (occurrence: None)
  Receive Date: 20100226
  Receipt Date: 20100217
  Transmission Date: 20100710
  Serious: Yes (Hospitalization)
  Sender: FDA-Public Use
  Company Number: FR-GENENTECH-298543

PATIENT
  Sex: Male
  Weight: 62 kg

DRUGS (4)
  1. RITUXIMAB [Suspect]
     Indication: MANTLE CELL LYMPHOMA
     Dosage: 375 MG/M2, UNK
     Route: 041
     Dates: start: 20090921, end: 20091202
  2. ARACYTINE [Suspect]
     Indication: MANTLE CELL LYMPHOMA
     Dosage: UNK
     Route: 065
     Dates: start: 20090918, end: 20091203
  3. CISPLATIN [Suspect]
     Indication: MANTLE CELL LYMPHOMA
     Dosage: UNK
     Route: 042
     Dates: start: 20090918
  4. DEXAMETASONE [Suspect]
     Indication: MANTLE CELL LYMPHOMA
     Dosage: 40 MG/M2, UNK
     Route: 065
     Dates: start: 20090918, end: 20091205

REACTIONS (1)
  - NEUROPATHY PERIPHERAL [None]
